FAERS Safety Report 8158442 (Version 3)
Quarter: 2013Q2

REPORT INFORMATION
  Report Type: Spontaneous
  Country: US (occurrence: US)
  Receive Date: 20110927
  Receipt Date: 20130403
  Transmission Date: 20140414
  Serious: Yes (Other)
  Sender: FDA-Public Use
  Company Number: US-ALEXION-A201101442

PATIENT
  Age: 57 Year
  Sex: Female
  Weight: 55.33 kg

DRUGS (11)
  1. SOLIRIS 300MG [Suspect]
     Indication: PAROXYSMAL NOCTURNAL HAEMOGLOBINURIA
     Dosage: 900 MG Q2W
     Route: 042
     Dates: start: 20100208, end: 201003
  2. SOLIRIS 300MG [Suspect]
     Dosage: 900 MG, Q2W
     Route: 042
     Dates: start: 201003
  3. FOSAMAX [Concomitant]
     Indication: OSTEOPOROSIS
     Dosage: 70 MG, QW
  4. IMITREX [Concomitant]
     Indication: MIGRAINE
     Dosage: 15 MG, PRN
  5. CALCIUM + VITAMIN D [Concomitant]
     Dosage: 1 DF, QD 600/400
  6. VITAMIN D [Concomitant]
     Dosage: 1 DF, QD 2000 IU
  7. IRON [Concomitant]
     Dosage: 325 TABLET, TID
  8. FISH OIL [Concomitant]
     Dosage: 1000 MG, QD
  9. VITAMIN B [Concomitant]
     Dosage: 1000 MG, QD
  10. CIPRO [Concomitant]
  11. FERRITIN [Concomitant]
     Dosage: 1TABLET DF, QD

REACTIONS (4)
  - Goitre [Not Recovered/Not Resolved]
  - Thyroid cyst [Not Recovered/Not Resolved]
  - Blood bilirubin increased [Unknown]
  - Viral infection [Recovering/Resolving]
